FAERS Safety Report 8593043-8 (Version None)
Quarter: 2012Q3

REPORT INFORMATION
  Report Type: 
  Country: None (occurrence: None)
  Receive Date: 20120814
  Receipt Date: 20120809
  Transmission Date: 20120928
  Serious: Yes (Life-Threatening, Other)
  Sender: FDA-Public Use
  Company Number: US-GLAXOSMITHKLINE-A0985727A

PATIENT
  Age: 81 Year
  Sex: Female

DRUGS (3)
  1. ATENOLOL [Concomitant]
  2. THYROID TAB [Concomitant]
  3. COREG CR [Suspect]
     Indication: HYPERTENSION
     Dosage: 10MG TWICE PER DAY
     Route: 048

REACTIONS (1)
  - HYPERTENSION [None]
